FAERS Safety Report 8832851 (Version 1)
Quarter: 2012Q4

REPORT INFORMATION
  Report Type: Spontaneous
  Country: US (occurrence: None)
  Receive Date: 20121009
  Receipt Date: 20121009
  Transmission Date: 20130627
  Serious: Yes (Other)
  Sender: FDA-Public Use
  Company Number: None

PATIENT
  Sex: Male
  Weight: 65.77 kg

DRUGS (2)
  1. PANTOPRAZOLE [Suspect]
     Indication: GERD
     Route: 048
     Dates: start: 201005, end: 20100620
  2. PANTOPRAZOLE [Suspect]
     Indication: BARRETT^S ESOPHAGUS
     Route: 048
     Dates: start: 201005, end: 20100620

REACTIONS (4)
  - Nausea [None]
  - Oesophageal pain [None]
  - Oesophageal spasm [None]
  - Product substitution issue [None]
